FAERS Safety Report 25892218 (Version 1)
Quarter: 2025Q4

REPORT INFORMATION
  Report Type: Report from Study
  Country: EU (occurrence: EU)
  Receive Date: 20251007
  Receipt Date: 20251007
  Transmission Date: 20260117
  Serious: Yes (Other)
  Sender: PFIZER
  Company Number: EU-PFIZER INC-PV202500118853

PATIENT

DRUGS (2)
  1. CRIZOTINIB [Suspect]
     Active Substance: CRIZOTINIB
     Dosage: 40 MG (2 X 20MG)
  2. CRIZOTINIB [Suspect]
     Active Substance: CRIZOTINIB
     Dosage: 60 MG, 2X/DAY

REACTIONS (1)
  - Neutropenia [Unknown]
